FAERS Safety Report 17720078 (Version 1)
Quarter: 2020Q2

REPORT INFORMATION
  Report Type: Report from Study
  Country: NL (occurrence: NL)
  Receive Date: 20200428
  Receipt Date: 20200428
  Transmission Date: 20200714
  Serious: Yes (Hospitalization)
  Sender: FDA-Public Use
  Company Number: NVSC2020NL114129

PATIENT
  Age: 58 Year
  Sex: Male

DRUGS (2)
  1. ILARIS [Suspect]
     Active Substance: CANAKINUMAB
     Indication: PRODUCT USED FOR UNKNOWN INDICATION
     Dosage: 1 DF, EVERY 4 WEEKS
     Route: 058
     Dates: start: 20190402
  2. ILARIS [Suspect]
     Active Substance: CANAKINUMAB
     Dosage: 1 DF,  EVERY 4 WEEKS
     Route: 065
     Dates: start: 20200331

REACTIONS (2)
  - Intestinal haemorrhage [Unknown]
  - Gastrointestinal disorder [Unknown]

NARRATIVE: CASE EVENT DATE: 20200424
